FAERS Safety Report 7184073-1 (Version None)
Quarter: 2010Q4

REPORT INFORMATION
  Report Type: 
  Country: None (occurrence: None)
  Receive Date: 20101222
  Receipt Date: 20101209
  Transmission Date: 20110411
  Serious: Yes (Other)
  Sender: FDA-Public Use
  Company Number: PHHY2010GR83614

PATIENT
  Sex: Female

DRUGS (4)
  1. CERTICAN [Suspect]
     Indication: IMMUNOSUPPRESSION
     Dosage: 1.5 MG
     Route: 048
     Dates: start: 20100729, end: 20101123
  2. MEDROL [Concomitant]
     Indication: IMMUNOSUPPRESSION
     Dosage: 6 MG
     Dates: start: 20101105
  3. NEORAL [Concomitant]
     Indication: IMMUNOSUPPRESSION
     Dosage: 125 MG
     Dates: start: 20100923
  4. CRESTOR [Concomitant]
     Indication: HYPERLIPIDAEMIA
     Dosage: 10 MG
     Dates: start: 20101013

REACTIONS (2)
  - MENSTRUAL DISORDER [None]
  - UTERINE HAEMORRHAGE [None]
